FAERS Safety Report 4774333-3 (Version None)
Quarter: 2005Q3

REPORT INFORMATION
  Report Type: 
  Country: None (occurrence: None)
  Receive Date: 20050914
  Receipt Date: 20050304
  Transmission Date: 20060218
  Serious: Yes (Death)
  Sender: FDA-Public Use
  Company Number: 163-20785-05030108

PATIENT
  Age: 48 Year
  Sex: Male

DRUGS (2)
  1. THALOMID [Suspect]
     Indication: MULTIPLE MYELOMA
     Dosage: 200 MG, QD , ORAL
     Route: 048
     Dates: start: 20040609, end: 20050303
  2. METHADONE [Concomitant]

REACTIONS (2)
  - COMPLETED SUICIDE [None]
  - DEATH [None]
